FAERS Safety Report 14681559 (Version 1)
Quarter: 2018Q1

REPORT INFORMATION
  Report Type: Spontaneous
  Country: US (occurrence: US)
  Receive Date: 20180326
  Receipt Date: 20180326
  Transmission Date: 20180509
  Serious: No
  Sender: FDA-Public Use
  Company Number: US-KASTLE THERAPEUTICS, LLC-2017KAS000033

PATIENT
  Age: 74 Year
  Sex: Female
  Weight: 63.11 kg

DRUGS (3)
  1. KYNAMRO [Suspect]
     Active Substance: MIPOMERSEN SODIUM
     Indication: TYPE IIA HYPERLIPIDAEMIA
  2. KYNAMRO [Suspect]
     Active Substance: MIPOMERSEN SODIUM
     Indication: TYPE IIA HYPERLIPIDAEMIA
     Route: 058
     Dates: start: 20170602, end: 2017
  3. KYNAMRO [Suspect]
     Active Substance: MIPOMERSEN SODIUM
     Indication: TYPE IIA HYPERLIPIDAEMIA

REACTIONS (5)
  - Injection site erythema [Unknown]
  - Injection site bruising [Recovering/Resolving]
  - Injection site discomfort [Unknown]
  - Injection site pain [Recovered/Resolved]
  - Injection site pruritus [Unknown]

NARRATIVE: CASE EVENT DATE: 2017
